FAERS Safety Report 25052042 (Version 1)
Quarter: 2025Q1

REPORT INFORMATION
  Report Type: Spontaneous
  Country: US (occurrence: US)
  Receive Date: 20250307
  Receipt Date: 20250307
  Transmission Date: 20250409
  Serious: No
  Sender: SAMSUNG BIOEPIS
  Company Number: US-SAMSUNG BIOEPIS-SB-2024-30339

PATIENT
  Sex: Male

DRUGS (1)
  1. HADLIMA [Suspect]
     Active Substance: ADALIMUMAB-BWWD
     Indication: Hidradenitis

REACTIONS (2)
  - Injection site pain [Not Recovered/Not Resolved]
  - Off label use [Unknown]
